FAERS Safety Report 24928785 (Version 1)
Quarter: 2025Q1

REPORT INFORMATION
  Report Type: Spontaneous
  Country: US (occurrence: None)
  Receive Date: 20250205
  Receipt Date: 20250205
  Transmission Date: 20250409
  Serious: Yes (Other)
  Sender: FDA-CTU
  Company Number: None

PATIENT
  Age: 75 Year
  Sex: Female
  Weight: 65 kg

DRUGS (1)
  1. KISUNLA [Suspect]
     Active Substance: DONANEMAB-AZBT
     Indication: Dementia Alzheimer^s type
     Route: 041
     Dates: start: 20241230, end: 20250204

REACTIONS (6)
  - Gait disturbance [None]
  - Gait disturbance [None]
  - Balance disorder [None]
  - Fatigue [None]
  - Decreased activity [None]
  - Infusion related reaction [None]

NARRATIVE: CASE EVENT DATE: 20250201
